FAERS Safety Report 11587908 (Version 2)
Quarter: 2016Q3

REPORT INFORMATION
  Report Type: Report from Study
  Country: US (occurrence: US)
  Receive Date: 20151001
  Receipt Date: 20160823
  Transmission Date: 20161109
  Serious: Yes (Death)
  Sender: FDA-Public Use
  Company Number: US-ARIAD PHARMACEUTICALS, INC-2015US005519

PATIENT
  Sex: Female

DRUGS (1)
  1. ICLUSIG [Suspect]
     Active Substance: PONATINIB
     Indication: PRODUCT USED FOR UNKNOWN INDICATION
     Dosage: 15 MG, BID
     Route: 048
     Dates: start: 20140428

REACTIONS (1)
  - Death [Fatal]
